FAERS Safety Report 24613482 (Version 1)
Quarter: 2024Q4

REPORT INFORMATION
  Report Type: Spontaneous
  Country: CN (occurrence: CN)
  Receive Date: 20241113
  Receipt Date: 20241113
  Transmission Date: 20250115
  Serious: Yes (Hospitalization, Other)
  Sender: GLAND PHARMA LTD
  Company Number: CN-GLANDPHARMA-CN-2024GLNLIT00968

PATIENT
  Age: 65 Year
  Sex: Female

DRUGS (8)
  1. DEXAMETHASONE SODIUM PHOSPHATE [Suspect]
     Active Substance: DEXAMETHASONE SODIUM PHOSPHATE
     Indication: Precursor T-lymphoblastic lymphoma/leukaemia
     Route: 065
  2. DEXAMETHASONE SODIUM PHOSPHATE [Suspect]
     Active Substance: DEXAMETHASONE SODIUM PHOSPHATE
     Indication: Precursor T-lymphoblastic lymphoma/leukaemia
  3. CYCLOPHOSPHAMIDE [Suspect]
     Active Substance: CYCLOPHOSPHAMIDE
     Indication: Precursor T-lymphoblastic lymphoma/leukaemia
     Route: 065
  4. CYCLOPHOSPHAMIDE [Suspect]
     Active Substance: CYCLOPHOSPHAMIDE
     Indication: Blastic plasmacytoid dendritic cell neoplasia
  5. DOXORUBICIN HYDROCHLORIDE [Suspect]
     Active Substance: DOXORUBICIN HYDROCHLORIDE
     Indication: Precursor T-lymphoblastic lymphoma/leukaemia
     Route: 065
  6. DOXORUBICIN HYDROCHLORIDE [Suspect]
     Active Substance: DOXORUBICIN HYDROCHLORIDE
     Indication: Blastic plasmacytoid dendritic cell neoplasia
  7. VINDESINE [Suspect]
     Active Substance: VINDESINE
     Indication: Precursor T-lymphoblastic lymphoma/leukaemia
     Route: 065
  8. VINDESINE [Suspect]
     Active Substance: VINDESINE
     Indication: Precursor T-lymphoblastic lymphoma/leukaemia

REACTIONS (3)
  - Myelosuppression [Unknown]
  - Pneumonia [Unknown]
  - Product use in unapproved indication [Unknown]
